FAERS Safety Report 12660008 (Version 2)
Quarter: 2016Q3

REPORT INFORMATION
  Report Type: Spontaneous
  Country: GB (occurrence: GB)
  Receive Date: 20160817
  Receipt Date: 20160930
  Transmission Date: 20161109
  Serious: Yes (Other)
  Sender: FDA-Public Use
  Company Number: GB-PFIZER INC-2015387890

PATIENT
  Age: 65 Year
  Sex: Male

DRUGS (7)
  1. EXEMESTANE. [Suspect]
     Active Substance: EXEMESTANE
     Dosage: UNK
  2. PACLITAXEL. [Suspect]
     Active Substance: PACLITAXEL
     Indication: BREAST CANCER METASTATIC
     Dosage: UNK
  3. TAMOXIFEN [Concomitant]
     Active Substance: TAMOXIFEN
     Dosage: 20 MG, 1X/DAY
     Route: 048
  4. ZOLEDRONATE BISPHOSPHONATE [Concomitant]
     Indication: METASTASES TO BONE
     Dosage: UNK
  5. GEMCITABINE HYDROCHLORIDE. [Suspect]
     Active Substance: GEMCITABINE HYDROCHLORIDE
     Indication: BREAST CANCER METASTATIC
     Dosage: UNK
  6. VITAMIN D /00107901/ [Concomitant]
     Active Substance: ERGOCALCIFEROL
     Indication: SUPPLEMENTATION THERAPY
     Dosage: UNK
  7. CALCIUM [Concomitant]
     Active Substance: CALCIUM
     Indication: METASTASES TO BONE
     Dosage: UNK

REACTIONS (1)
  - Febrile neutropenia [Unknown]
